FAERS Safety Report 11825431 (Version 5)
Quarter: 2016Q1

REPORT INFORMATION
  Report Type: Spontaneous
  Country: JP (occurrence: JP)
  Receive Date: 20151211
  Receipt Date: 20160310
  Transmission Date: 20160525
  Serious: Yes (Hospitalization, Other)
  Sender: FDA-Public Use
  Company Number: JP-009507513-1512JPN006077

PATIENT
  Age: 18 Year
  Sex: Female
  Weight: 53 kg

DRUGS (14)
  1. BELSOMRA [Suspect]
     Active Substance: SUVOREXANT
     Indication: INSOMNIA
     Dosage: 720 MG, ONCE
     Route: 048
     Dates: start: 20151124, end: 20151124
  2. MUCOSTA [Suspect]
     Active Substance: REBAMIPIDE
     Indication: GASTROINTESTINAL DISORDER
     Dosage: 100 MG, ONCE
     Route: 048
     Dates: start: 20151124, end: 20151124
  3. DOGMATYL [Suspect]
     Active Substance: SULPIRIDE
     Dosage: 50 MG, TID
     Route: 048
     Dates: start: 20151023, end: 20151123
  4. LOXONIN [Suspect]
     Active Substance: LOXOPROFEN SODIUM
     Dosage: UNK
     Route: 048
     Dates: end: 20151123
  5. BELSOMRA [Suspect]
     Active Substance: SUVOREXANT
     Dosage: 20 MG, QD
     Route: 048
     Dates: start: 20151214
  6. GASTER [Suspect]
     Active Substance: FAMOTIDINE
     Indication: GASTROINTESTINAL DISORDER
     Dosage: 40 MG, ONCE, FORMULATION: TABLET
     Route: 048
     Dates: start: 20151124, end: 20151124
  7. DEPROMEL [Suspect]
     Active Substance: FLUVOXAMINE
     Indication: DEPRESSED MOOD
     Dosage: 100 MG, ONCE
     Route: 048
     Dates: start: 20151124, end: 20151124
  8. DEPROMEL [Suspect]
     Active Substance: FLUVOXAMINE
     Indication: HYPERPHAGIA
     Dosage: 25 MG, BID
     Route: 048
     Dates: start: 20150925, end: 20151123
  9. MUCOSTA [Suspect]
     Active Substance: REBAMIPIDE
     Dosage: 100 MG, TID
     Route: 048
     Dates: start: 20151023, end: 20151123
  10. BELSOMRA [Suspect]
     Active Substance: SUVOREXANT
     Indication: SLEEP DISORDER
     Dosage: 20 MG, QD
     Route: 048
     Dates: start: 20150828, end: 20151123
  11. GASTER [Suspect]
     Active Substance: FAMOTIDINE
     Dosage: 20 MG, BID, FORMULATION: TABLET
     Route: 048
     Dates: start: 20151102, end: 20151123
  12. DOGMATYL [Suspect]
     Active Substance: SULPIRIDE
     Indication: DECREASED APPETITE
     Dosage: 50 MG, ONCE
     Route: 048
     Dates: start: 20151124, end: 20151124
  13. DEPROMEL [Suspect]
     Active Substance: FLUVOXAMINE
     Indication: DEPRESSION
  14. LOXONIN [Suspect]
     Active Substance: LOXOPROFEN SODIUM
     Dosage: 180 MG DAILY (3 TABLETS), DIVIDED DOSE FREQUENCY WAS UNKNOWN
     Route: 048
     Dates: start: 20151124, end: 20151124

REACTIONS (3)
  - Dizziness [Recovered/Resolved]
  - Urinary retention [Recovered/Resolved]
  - Intentional overdose [Unknown]

NARRATIVE: CASE EVENT DATE: 20151124
